FAERS Safety Report 16212029 (Version 2)
Quarter: 2019Q2

REPORT INFORMATION
  Report Type: Report from Study
  Country: CA (occurrence: CA)
  Receive Date: 20190418
  Receipt Date: 20190430
  Transmission Date: 20190711
  Serious: Yes (Hospitalization)
  Sender: FDA-Public Use
  Company Number: CA-GLAXOSMITHKLINE-CA2019GSK069180

PATIENT
  Sex: Female

DRUGS (4)
  1. ALVESCO [Suspect]
     Active Substance: CICLESONIDE
     Indication: MALAISE
     Dosage: 2 PUFF(S), QID (200 UG)
  2. SPIRIVA [Suspect]
     Active Substance: TIOTROPIUM BROMIDE MONOHYDRATE
     Indication: MALAISE
     Dosage: 1 PUFF(S), QD (18UG)
  3. SALBUTAMOL SULPHATE [Suspect]
     Active Substance: ALBUTEROL SULFATE
     Indication: MALAISE
     Dosage: 2 PUFF(S), PRN (100MG)
  4. ZENHALE [Suspect]
     Active Substance: FORMOTEROL FUMARATE\MOMETASONE FUROATE
     Indication: MALAISE
     Dosage: 2 PUFF(S), BID

REACTIONS (8)
  - Asthma [Unknown]
  - Therapeutic product effect incomplete [Unknown]
  - Malaise [Unknown]
  - Sleep disorder due to a general medical condition [Unknown]
  - Loss of personal independence in daily activities [Unknown]
  - Dyspnoea [Unknown]
  - Bronchial secretion retention [Unknown]
  - Wheezing [Unknown]
